FAERS Safety Report 21622140 (Version 2)
Quarter: 2022Q4

REPORT INFORMATION
  Report Type: Spontaneous
  Country: PK (occurrence: None)
  Receive Date: 20221121
  Receipt Date: 20221130
  Transmission Date: 20230113
  Serious: Yes (Death)
  Sender: FDA-Public Use
  Company Number: PK-ROCHE-3222501

PATIENT
  Age: 60 Year
  Sex: Female

DRUGS (1)
  1. HERCEPTIN [Suspect]
     Active Substance: TRASTUZUMAB
     Indication: Breast cancer
     Dosage: VIAL 600MG/5ML
     Route: 058
     Dates: start: 20221025, end: 20221025

REACTIONS (1)
  - Death [Fatal]
